FAERS Safety Report 13008640 (Version 5)
Quarter: 2017Q4

REPORT INFORMATION
  Report Type: Spontaneous
  Country: US (occurrence: US)
  Receive Date: 20161208
  Receipt Date: 20171213
  Transmission Date: 20180320
  Serious: No
  Sender: FDA-Public Use
  Company Number: US-PFIZER INC-2016565584

PATIENT
  Age: 73 Year
  Sex: Female
  Weight: 71 kg

DRUGS (5)
  1. LATANOPROST. [Suspect]
     Active Substance: LATANOPROST
     Dosage: 2 GTT, DAILY (ONE DROP INTO EACH EYE, AT BEDTIME)
     Route: 047
  2. DORZOLAMIDE [Concomitant]
     Active Substance: DORZOLAMIDE
     Dosage: UNK
  3. LATANOPROST. [Suspect]
     Active Substance: LATANOPROST
     Dosage: 2 GTT, DAILY (ONE DROP INTO EACH EYE, AT BEDTIME)
     Route: 047
  4. LATANOPROST. [Suspect]
     Active Substance: LATANOPROST
     Indication: ANGLE CLOSURE GLAUCOMA
     Dosage: 2 GTT, DAILY (ONE DROP INTO EACH EYE, AT BEDTIME)
     Route: 047
  5. LATANOPROST. [Suspect]
     Active Substance: LATANOPROST
     Indication: OPEN ANGLE GLAUCOMA
     Dosage: 2 GTT, DAILY (ONE DROP INTO EACH EYE, AT BEDTIME)
     Route: 047

REACTIONS (3)
  - Incorrect dose administered [Unknown]
  - Nasal disorder [Unknown]
  - Product quality issue [Unknown]
